FAERS Safety Report 8123713-7 (Version None)
Quarter: 2012Q1

REPORT INFORMATION
  Report Type: 
  Country: None (occurrence: None)
  Receive Date: 20120208
  Receipt Date: 20120130
  Transmission Date: 20120608
  Serious: Yes (Hospitalization, Other)
  Sender: FDA-Public Use
  Company Number: NL-ROCHE-1032218

PATIENT
  Age: 54 Year
  Sex: Female
  Weight: 125 kg

DRUGS (8)
  1. POTASSIUM CHLORIDE [Concomitant]
     Indication: HYPOKALAEMIA
  2. METOPROLOL [Concomitant]
  3. HYDROCHLOROTHIAZIDE [Concomitant]
  4. ACTEMRA [Suspect]
     Indication: RHEUMATOID ARTHRITIS
     Route: 042
     Dates: start: 20110909, end: 20120116
  5. METOCLOPRAMIDE [Concomitant]
  6. PLAQUENIL [Concomitant]
     Route: 048
  7. DEXAMETHASONE [Concomitant]
     Route: 048
  8. PANTOPRAZOLE [Concomitant]

REACTIONS (9)
  - DIARRHOEA [None]
  - PHARYNGEAL OEDEMA [None]
  - HAEMOPTYSIS [None]
  - SERUM SICKNESS [None]
  - ARTHROPATHY [None]
  - ARTHRALGIA [None]
  - PURPURA [None]
  - VASCULITIS [None]
  - VOMITING [None]
